FAERS Safety Report 8977360 (Version 1)
Quarter: 2012Q4

REPORT INFORMATION
  Report Type: 
  Country: HU (occurrence: HU)
  Receive Date: 20121220
  Receipt Date: 20121220
  Transmission Date: 20130627
  Serious: Yes (Hospitalization)
  Sender: FDA-Public Use
  Company Number: HU-009507513-1212HUN007908

PATIENT
  Age: 52 Year
  Sex: Male

DRUGS (4)
  1. VICTRELIS [Suspect]
     Indication: HEPATITIS C
     Dosage: 2400 mg/day, hard capules
     Route: 048
     Dates: start: 2011, end: 2012
  2. PEGINTRON [Suspect]
     Indication: HEPATITIS C
     Dosage: 150 Microgram, qw, 50 micrograms powder and solvent
     Route: 058
     Dates: start: 2011, end: 2012
  3. PEGINTRON [Suspect]
     Dosage: 150 Microgram, qw,50 micrograms powder and solvent
     Route: 058
     Dates: start: 2011, end: 2012
  4. REBETOL [Suspect]
     Indication: HEPATITIS C
     Dosage: 1200 mg, qd

REACTIONS (3)
  - Rectal adenocarcinoma [Recovering/Resolving]
  - Flatulence [Unknown]
  - Diarrhoea [Recovering/Resolving]
